FAERS Safety Report 4262252-0 (Version None)
Quarter: 2004Q1

REPORT INFORMATION
  Report Type: 
  Country: None (occurrence: None)
  Receive Date: 20040102
  Receipt Date: 20020806
  Transmission Date: 20041129
  Serious: Yes (Hospitalization)
  Sender: FDA-Public Use
  Company Number: FR-ROCHE-318764

PATIENT
  Age: 56 Year
  Sex: Female
  Weight: 63 kg

DRUGS (10)
  1. DACLIZUMAB [Suspect]
     Route: 042
     Dates: start: 20020326, end: 20020409
  2. MYCOPHENOLATE MOFETIL [Suspect]
     Route: 048
     Dates: start: 20020327
  3. NEORAL [Suspect]
     Route: 048
     Dates: start: 20020527
  4. CORTICOSTEROIDS [Suspect]
     Route: 048
     Dates: start: 20020326
  5. BISOPROLOL FUMARATE [Concomitant]
     Route: 048
     Dates: start: 20020417
  6. MOPRAL [Concomitant]
     Route: 048
     Dates: start: 20020326
  7. LEVOTHYROXINE SODIUM [Concomitant]
     Indication: HYPOTHYROIDISM
     Route: 048
     Dates: start: 20020326
  8. BACTRIM [Concomitant]
     Route: 048
     Dates: start: 20020328
  9. CYMEVAN [Concomitant]
     Route: 048
     Dates: start: 20020404
  10. TARDYFERON B9 [Concomitant]
     Dates: start: 20020412

REACTIONS (6)
  - BLOOD CREATININE INCREASED [None]
  - CYTOMEGALOVIRUS INFECTION [None]
  - PYELONEPHRITIS [None]
  - PYREXIA [None]
  - RENAL IMPAIRMENT [None]
  - RENAL INTERSTITIAL FIBROSIS [None]
